FAERS Safety Report 23752890 (Version 1)
Quarter: 2024Q2

REPORT INFORMATION
  Report Type: Spontaneous
  Country: CA (occurrence: CA)
  Receive Date: 20240417
  Receipt Date: 20240417
  Transmission Date: 20240716
  Serious: Yes (Life-Threatening, Other)
  Sender: FDA-Public Use
  Company Number: CA-FreseniusKabi-FK202405842

PATIENT
  Age: 64 Year
  Sex: Male
  Weight: 78 kg

DRUGS (2)
  1. HEPARIN SODIUM [Suspect]
     Active Substance: HEPARIN SODIUM
     Indication: Anticoagulant therapy
     Dosage: FREQUENCY: ONCE?30 ML VIAL?HEPARIN 1000 UNITS/ML?FORM OF ADMIN.- INJECTION?3900 UNITS HEPARIN 8:30
     Route: 042
     Dates: start: 20240329, end: 20240329
  2. HEPARIN SODIUM [Suspect]
     Active Substance: HEPARIN SODIUM
     Indication: Angioplasty

REACTIONS (2)
  - Vascular stent thrombosis [Recovered/Resolved]
  - Coagulation time abnormal [Recovered/Resolved]
